FAERS Safety Report 12719408 (Version 5)
Quarter: 2017Q2

REPORT INFORMATION
  Report Type: Report from Study
  Country: CA (occurrence: CA)
  Receive Date: 20160907
  Receipt Date: 20170421
  Transmission Date: 20170830
  Serious: Yes (Other)
  Sender: FDA-Public Use
  Company Number: CA-TAKEDA-2016MPI007802

PATIENT
  Age: 62 Year
  Sex: Male

DRUGS (5)
  1. DEXAMETHASONE. [Suspect]
     Active Substance: DEXAMETHASONE
     Indication: PLASMA CELL MYELOMA
     Dosage: 40 MG, 1/WEEK
     Route: 065
  2. REVLIMID [Suspect]
     Active Substance: LENALIDOMIDE
     Indication: PLASMA CELL MYELOMA
     Dosage: 10 MG, UNK
     Route: 065
  3. CYCLOPHOSPHAMIDE. [Suspect]
     Active Substance: CYCLOPHOSPHAMIDE
     Indication: PLASMA CELL MYELOMA
     Dosage: UNK
     Route: 065
  4. VELCADE [Suspect]
     Active Substance: BORTEZOMIB
     Indication: PLASMA CELL MYELOMA
     Dosage: 1.5 MG/M2, UNK
     Route: 065
  5. VELCADE [Suspect]
     Active Substance: BORTEZOMIB
     Dosage: 1.5 MG/M2, 1/WEEK
     Route: 065
     Dates: start: 201608

REACTIONS (11)
  - Drug effect incomplete [Unknown]
  - Anaemia [Not Recovered/Not Resolved]
  - Gastritis [Unknown]
  - Incorrect dose administered [Unknown]
  - Urine abnormality [Not Recovered/Not Resolved]
  - Drug ineffective [Unknown]
  - Gastrointestinal tract adenoma [Unknown]
  - Off label use [Unknown]
  - Secondary amyloidosis [Unknown]
  - Abdominal discomfort [Not Recovered/Not Resolved]
  - Hepatitis B antibody positive [Not Recovered/Not Resolved]
